FAERS Safety Report 23408262 (Version 2)
Quarter: 2025Q2

REPORT INFORMATION
  Report Type: Report from Study
  Country: US (occurrence: US)
  Receive Date: 20240117
  Receipt Date: 20250513
  Transmission Date: 20250717
  Serious: Yes (Other)
  Sender: ROCHE
  Company Number: US-ROCHE-3489139

PATIENT
  Age: 13 Year
  Sex: Female
  Weight: 30 kg

DRUGS (18)
  1. EVRYSDI [Suspect]
     Active Substance: RISDIPLAM
     Indication: Spinal muscular atrophy
     Route: 048
     Dates: start: 20210127
  2. EVRYSDI [Suspect]
     Active Substance: RISDIPLAM
     Route: 050
     Dates: start: 20220601
  3. HYCET (UNITED STATES) [Concomitant]
     Route: 050
  4. PULMICORT TURBUHALER [Concomitant]
     Active Substance: BUDESONIDE
  5. IBUPROFEN [Concomitant]
     Active Substance: IBUPROFEN
     Route: 050
  6. DICLOFENAC SODIUM [Concomitant]
     Active Substance: DICLOFENAC SODIUM
  7. FLONASE [Concomitant]
     Active Substance: FLUTICASONE PROPIONATE
  8. CUVPOSA [GLYCOPYRRONIUM] [Concomitant]
     Route: 050
  9. ATROVENT [Concomitant]
     Active Substance: IPRATROPIUM BROMIDE
     Route: 050
  10. ISOPTO TEARS [Concomitant]
     Active Substance: HYPROMELLOSE 2910 (4000 MPA.S)
  11. XOPENEX [Concomitant]
     Active Substance: LEVALBUTEROL HYDROCHLORIDE
     Route: 050
  12. CLARITIN [Concomitant]
     Active Substance: LORATADINE
     Route: 050
  13. MELATONIN [Concomitant]
     Active Substance: MELATONIN
     Route: 050
  14. BACTROBAN [Concomitant]
     Active Substance: MUPIROCIN CALCIUM
     Route: 061
  15. MYCOSTATIN [Concomitant]
     Active Substance: NYSTATIN
  16. MIRALAX [Concomitant]
     Active Substance: POLYETHYLENE GLYCOL 3350
     Route: 050
  17. SODIUM CHLORIDE [Concomitant]
     Active Substance: SODIUM CHLORIDE
  18. KENALOG [Concomitant]
     Active Substance: TRIAMCINOLONE ACETONIDE
     Route: 061

REACTIONS (3)
  - Hepatic enzyme increased [Not Recovered/Not Resolved]
  - Blood glucose increased [Unknown]
  - Blood potassium increased [Unknown]

NARRATIVE: CASE EVENT DATE: 20220517
